FAERS Safety Report 9242950 (Version 4)
Quarter: 2013Q3

REPORT INFORMATION
  Report Type: Spontaneous
  Country: NZ (occurrence: NZ)
  Receive Date: 20130419
  Receipt Date: 20130723
  Transmission Date: 20140515
  Serious: Yes (Hospitalization)
  Sender: FDA-Public Use
  Company Number: NZ-CELGENEUS-118-21880-13041526

PATIENT
  Age: 67 Year
  Sex: Male
  Weight: 84 kg

DRUGS (4)
  1. REVLIMID [Suspect]
     Indication: PLASMA CELL MYELOMA
     Dosage: 25 MILLIGRAM
     Route: 048
     Dates: start: 20130121
  2. MLN9708/PLACEBO [Suspect]
     Indication: PLASMA CELL MYELOMA
     Dosage: 4 MILLIGRAM
     Route: 048
     Dates: start: 20130121
  3. DEXAMETHASONE [Suspect]
     Indication: PLASMA CELL MYELOMA
     Dosage: 20 MILLIGRAM
     Route: 048
     Dates: start: 20130121
  4. DEXAMETHASONE [Suspect]
     Dosage: 8 MILLIGRAM
     Route: 048
     Dates: start: 20130422

REACTIONS (1)
  - Hyperglycaemia [Recovered/Resolved]
